FAERS Safety Report 16583909 (Version 1)
Quarter: 2019Q3

REPORT INFORMATION
  Report Type: Spontaneous
  Country: US (occurrence: US)
  Receive Date: 20190604
  Receipt Date: 20190604
  Transmission Date: 20191004
  Serious: Yes (Death)
  Sender: FDA-Public Use
  Company Number: None

PATIENT
  Age: 64 Year
  Sex: Male
  Weight: 72.57 kg

DRUGS (1)
  1. LUNESTA [Suspect]
     Active Substance: ESZOPICLONE
     Indication: INSOMNIA
     Route: 048
     Dates: start: 20060822, end: 20190116

REACTIONS (6)
  - Therapeutic response changed [None]
  - Abnormal behaviour [None]
  - Feeling abnormal [None]
  - Drug ineffective [None]
  - Completed suicide [None]
  - Hanging [None]

NARRATIVE: CASE EVENT DATE: 20190117
